FAERS Safety Report 9894428 (Version 2)
Quarter: 2014Q1

REPORT INFORMATION
  Report Type: Spontaneous
  Country: IN (occurrence: IN)
  Receive Date: 20140213
  Receipt Date: 20140217
  Transmission Date: 20141002
  Serious: Yes (Death, Hospitalization, Other)
  Sender: FDA-Public Use
  Company Number: PHHY2014IN015240

PATIENT
  Age: 41 Year
  Sex: Female

DRUGS (3)
  1. DOXORUBICIN [Suspect]
     Indication: GASTRIC CANCER
     Dosage: 40 MG, ON DAYS 1,29
     Route: 042
  2. 5-FLUOROURACIL [Suspect]
     Indication: GASTRIC CANCER
     Dosage: 800 MG ON DAYS I, 8, 29, 36
     Route: 042
  3. MITOMYCIN [Suspect]
     Indication: GASTRIC CANCER
     Dosage: 12 MG, ON DAY I

REACTIONS (7)
  - Haemorrhage intracranial [Fatal]
  - Acute undifferentiated leukaemia [Unknown]
  - Asthenia [Unknown]
  - Pancytopenia [Unknown]
  - Pyrexia [Unknown]
  - Neutropenia [Unknown]
  - Splenomegaly [Unknown]
